FAERS Safety Report 9449734 (Version 2)
Quarter: 2013Q3

REPORT INFORMATION
  Report Type: Spontaneous
  Country: JP (occurrence: JP)
  Receive Date: 20130809
  Receipt Date: 20130826
  Transmission Date: 20140515
  Serious: Yes (Other)
  Sender: FDA-Public Use
  Company Number: JP-JNJFOC-20130802240

PATIENT
  Sex: Female

DRUGS (2)
  1. TRAMCET [Suspect]
     Indication: NECK PAIN
     Dosage: 1 PER 1 DAY, ONLY AT NIGHT FOR THE FIRST 2 WEEKS
     Route: 048
  2. TRAMCET [Suspect]
     Indication: NECK PAIN
     Dosage: 3 PER 1 DAY, IN THE MORNING, NOON, AND NIGHT FOR THE FOLLOWING 2 WEEKS
     Route: 048

REACTIONS (2)
  - White blood cell count decreased [Unknown]
  - Nasopharyngitis [Unknown]
